FAERS Safety Report 20942692 (Version 1)
Quarter: 2022Q2

REPORT INFORMATION
  Report Type: Spontaneous
  Country: PL (occurrence: PL)
  Receive Date: 20220610
  Receipt Date: 20220610
  Transmission Date: 20220721
  Serious: Yes (Other)
  Sender: FDA-Public Use
  Company Number: PL-NOVARTISPH-NVSC2022PL129805

PATIENT
  Age: 74 Year
  Sex: Female

DRUGS (3)
  1. PACLITAXEL [Suspect]
     Active Substance: PACLITAXEL
     Indication: Squamous cell carcinoma of lung
     Dosage: UNK UNK, CYCLIC
     Route: 065
     Dates: start: 202105
  2. CARBOPLATIN [Suspect]
     Active Substance: CARBOPLATIN
     Indication: Squamous cell carcinoma of lung
     Dosage: UNK UNK, CYCLIC
     Route: 065
     Dates: start: 202105
  3. PEMBROLIZUMAB [Suspect]
     Active Substance: PEMBROLIZUMAB
     Indication: Squamous cell carcinoma of lung
     Dosage: UNK UNK, CYCLIC
     Route: 065
     Dates: start: 202105

REACTIONS (5)
  - Hyperthyroidism [Recovering/Resolving]
  - Hepatotoxicity [Recovering/Resolving]
  - Metabolic function test abnormal [Unknown]
  - Fatigue [Unknown]
  - Anaemia [Unknown]

NARRATIVE: CASE EVENT DATE: 20210101
